FAERS Safety Report 6206611-5 (Version None)
Quarter: 2009Q2

REPORT INFORMATION
  Report Type: 
  Country: None (occurrence: None)
  Receive Date: 20090527
  Receipt Date: 20090527
  Transmission Date: 20091009
  Serious: Yes (Life-Threatening)
  Sender: FDA-Public Use
  Company Number: None

PATIENT
  Age: 45 Year
  Sex: Female
  Weight: 90.7194 kg

DRUGS (2)
  1. SINGULAIR [Suspect]
     Indication: ANGIOEDEMA
     Dosage: 1 PILL EACH DAY PO
     Route: 048
     Dates: start: 20060301, end: 20070327
  2. SINGULAIR [Suspect]
     Indication: MULTIPLE ALLERGIES
     Dosage: 1 PILL EACH DAY PO
     Route: 048
     Dates: start: 20060301, end: 20070327

REACTIONS (1)
  - SUICIDE ATTEMPT [None]
